FAERS Safety Report 6085474-5 (Version None)
Quarter: 2009Q1

REPORT INFORMATION
  Report Type: 
  Country: None (occurrence: None)
  Receive Date: 20090220
  Receipt Date: 20090210
  Transmission Date: 20090719
  Serious: Yes (Death, Hospitalization)
  Sender: FDA-Public Use
  Company Number: DE-PURDUE-DEU_2009_0005030

PATIENT
  Age: 63 Year
  Sex: Male

DRUGS (12)
  1. MST [Suspect]
     Indication: DRUG USE FOR UNKNOWN INDICATION
     Dosage: 70 MG, DAILY
     Route: 048
  2. REVLIMID [Suspect]
     Indication: PLASMACYTOMA
     Dosage: 25 MG, DAILY
     Route: 048
     Dates: start: 20081211, end: 20081231
  3. REVLIMID [Suspect]
     Dosage: 10 MG, DAILY
     Route: 048
     Dates: start: 20081105, end: 20081128
  4. DEXAMETHASONE [Suspect]
     Indication: DRUG USE FOR UNKNOWN INDICATION
     Route: 048
  5. CLEXANE [Suspect]
     Indication: DRUG USE FOR UNKNOWN INDICATION
     Dosage: .6 ML, BID
     Route: 058
  6. SAROTEN [Suspect]
     Indication: DRUG USE FOR UNKNOWN INDICATION
     Dosage: 50 MG, DAILY
     Route: 065
  7. METOHEXAL                          /00376902/ [Concomitant]
  8. PANTOZOL                           /01263202/ [Concomitant]
  9. RAMIPRIL [Concomitant]
  10. NOVAMINSULFON [Concomitant]
  11. MOVICOL                            /01749801/ [Concomitant]
  12. BELOC ZOK [Concomitant]

REACTIONS (8)
  - CARDIAC FAILURE [None]
  - DEEP VEIN THROMBOSIS [None]
  - ENCEPHALITIS [None]
  - PNEUMONIA [None]
  - PULMONARY EMBOLISM [None]
  - PULMONARY INFARCTION [None]
  - RENAL FAILURE ACUTE [None]
  - SEPSIS [None]
